FAERS Safety Report 19738356 (Version 1)
Quarter: 2021Q3

REPORT INFORMATION
  Report Type: Spontaneous
  Country: US (occurrence: US)
  Receive Date: 20210824
  Receipt Date: 20210824
  Transmission Date: 20211014
  Serious: No
  Sender: FDA-Public Use
  Company Number: US-COHERUS BIOSCIENCES, INC-2021-COH-US003311

PATIENT

DRUGS (8)
  1. CERAVE PSORIASIS [Concomitant]
     Indication: DRY SKIN
  2. IMODIUM [Concomitant]
     Active Substance: LOPERAMIDE HYDROCHLORIDE
     Indication: DIARRHOEA
     Dosage: 4?6 TABLETS, DAILY WITHIN 2?3 HOURS OF UDENYCA ADMINISTRATION
     Dates: start: 2021
  3. UDENYCA [Suspect]
     Active Substance: PEGFILGRASTIM-CBQV
     Indication: INFECTION PROPHYLAXIS
     Dosage: 6 MG/0.6 ML
     Route: 058
     Dates: start: 2021
  4. MUPIROCIN. [Concomitant]
     Active Substance: MUPIROCIN
     Indication: EPISTAXIS
     Dosage: ^APPLY SMALL AMOUNT TO NOSE^, BID
     Route: 061
     Dates: start: 2021
  5. CLOBETASOL PROPIONATE. [Concomitant]
     Active Substance: CLOBETASOL PROPIONATE
     Indication: DRY SKIN
     Dosage: UNK
     Route: 061
  6. DIPHENHYDRAMINE;LIDOCAINE;NYSTATIN [Concomitant]
     Indication: DENTAL DISORDER PROPHYLAXIS
  7. GRANIX [Concomitant]
     Active Substance: TBO-FILGRASTIM
     Dosage: UNK
     Dates: start: 2016
  8. AFRIN [Concomitant]
     Active Substance: OXYMETAZOLINE
     Indication: EPISTAXIS

REACTIONS (10)
  - Dry skin [Not Recovered/Not Resolved]
  - Tenderness [Not Recovered/Not Resolved]
  - Epistaxis [Recovered/Resolved]
  - Tongue haemorrhage [Not Recovered/Not Resolved]
  - Eye pain [Not Recovered/Not Resolved]
  - Gingival pain [Not Recovered/Not Resolved]
  - Oral pain [Not Recovered/Not Resolved]
  - Hypoaesthesia oral [Not Recovered/Not Resolved]
  - Diarrhoea [Not Recovered/Not Resolved]
  - Pain in jaw [Not Recovered/Not Resolved]

NARRATIVE: CASE EVENT DATE: 2016
